FAERS Safety Report 10368152 (Version 1)
Quarter: 2014Q3

REPORT INFORMATION
  Report Type: Spontaneous
  Country: CA (occurrence: CA)
  Receive Date: 20140807
  Receipt Date: 20140807
  Transmission Date: 20150326
  Serious: Yes (Hospitalization)
  Sender: FDA-Public Use
  Company Number: PHHY2014CA097105

PATIENT
  Age: 71 Year
  Sex: Female

DRUGS (3)
  1. MOGADON [Suspect]
     Active Substance: NITRAZEPAM
     Dosage: 5 MG, QD
  2. DILANTIN [Suspect]
     Active Substance: PHENYTOIN
     Dosage: 150 MG, QD
  3. TEGRETOL [Suspect]
     Active Substance: CARBAMAZEPINE
     Dosage: 800 MG,

REACTIONS (2)
  - Ataxia [Unknown]
  - Convulsion [Unknown]
